FAERS Safety Report 10986491 (Version 2)
Quarter: 2015Q2

REPORT INFORMATION
  Report Type: Spontaneous
  Country: IT (occurrence: IT)
  Receive Date: 20150404
  Receipt Date: 20150630
  Transmission Date: 20150821
  Serious: Yes (Life-Threatening)
  Sender: FDA-Public Use
  Company Number: IT-009507513-1503ITA012515

PATIENT
  Age: 72 Year
  Sex: Female

DRUGS (9)
  1. KETOROLAC [Concomitant]
     Active Substance: KETOROLAC\KETOROLAC TROMETHAMINE
  2. ONDANSETRON [Concomitant]
     Active Substance: ONDANSETRON
  3. ESMERON [Suspect]
     Active Substance: ROCURONIUM BROMIDE
     Indication: INDUCTION OF ANAESTHESIA
     Dosage: 25 MG, STRENGTH: 10 MG/ML
     Route: 042
     Dates: start: 20150318, end: 20150318
  4. ULTIVA [Concomitant]
     Active Substance: REMIFENTANIL HYDROCHLORIDE
     Indication: INDUCTION OF ANAESTHESIA
  5. ZANTAC [Concomitant]
     Active Substance: RANITIDINE HYDROCHLORIDE
  6. ESMERON [Suspect]
     Active Substance: ROCURONIUM BROMIDE
     Dosage: 10 MG, STRENGTH: 10 MG/ML
     Route: 042
     Dates: start: 20150318, end: 20150318
  7. PROPOFOL. [Concomitant]
     Active Substance: PROPOFOL
     Indication: INDUCTION OF ANAESTHESIA
  8. MORPHINE [Concomitant]
     Active Substance: MORPHINE
  9. SEVORANE [Concomitant]
     Active Substance: SEVOFLURANE

REACTIONS (1)
  - Anaesthetic complication pulmonary [Recovered/Resolved]

NARRATIVE: CASE EVENT DATE: 20150318
